FAERS Safety Report 4974893-3 (Version None)
Quarter: 2006Q1

REPORT INFORMATION
  Report Type: 
  Country: None (occurrence: None)
  Receive Date: 20060227
  Receipt Date: 20060120
  Transmission Date: 20060701
  Serious: No
  Sender: FDA-Public Use
  Company Number: PHEH2006US01222

PATIENT
  Age: 66 Year
  Sex: Male

DRUGS (1)
  1. ENABLEX [Suspect]
     Indication: INCONTINENCE
     Dosage: 7.5 MG , QD,UNK
     Dates: start: 20060118

REACTIONS (1)
  - PALPITATIONS [None]
